FAERS Safety Report 7867042-5 (Version None)
Quarter: 2011Q4

REPORT INFORMATION
  Report Type: 
  Country: None (occurrence: None)
  Receive Date: 20111028
  Receipt Date: 20111025
  Transmission Date: 20120403
  Serious: Yes (Other)
  Sender: FDA-Public Use
  Company Number: GB-ROXANE LABORATORIES, INC.-2011-RO-01531RO

PATIENT
  Age: 69 Year
  Sex: Female

DRUGS (1)
  1. AZATHIOPRINE [Suspect]
     Indication: AUTOIMMUNE HEPATITIS

REACTIONS (3)
  - ACUTE MYELOID LEUKAEMIA [None]
  - CHLOROMA [None]
  - BONE MARROW LEUKAEMIC CELL INFILTRATION [None]
